FAERS Safety Report 14658373 (Version 2)
Quarter: 2018Q2

REPORT INFORMATION
  Report Type: Report from Study
  Country: NL (occurrence: NL)
  Receive Date: 20180320
  Receipt Date: 20180427
  Transmission Date: 20180711
  Serious: Yes (Other)
  Sender: FDA-Public Use
  Company Number: NL-AMGEN-NLDSL2018025492

PATIENT
  Age: 62 Year
  Sex: Female

DRUGS (2)
  1. NEULASTA [Suspect]
     Active Substance: PEGFILGRASTIM
     Indication: NEUTROPENIA
     Dosage: 6 MG, Q2WK FOR 4 DOSES
     Route: 058
     Dates: start: 20171026
  2. NEULASTA [Suspect]
     Active Substance: PEGFILGRASTIM
     Dosage: 6 MG, Q3WK FOR 3 DOSES
     Route: 058

REACTIONS (4)
  - Bone disorder [Recovered/Resolved]
  - Arthropathy [Recovered/Resolved]
  - Transfusion [Unknown]
  - Muscle disorder [Recovered/Resolved]

NARRATIVE: CASE EVENT DATE: 20171108
